FAERS Safety Report 8763608 (Version 2)
Quarter: 2013Q4

REPORT INFORMATION
  Report Type: Spontaneous
  Country: US (occurrence: US)
  Receive Date: 20120831
  Receipt Date: 20131101
  Transmission Date: 20140711
  Serious: No
  Sender: FDA-Public Use
  Company Number: US-009507513-1208USA003552

PATIENT
  Sex: Male

DRUGS (4)
  1. COSOPT [Suspect]
     Indication: GLAUCOMA
     Dosage: 1 DROP IN EACH EYE, BID
     Route: 046
     Dates: start: 2012
  2. HYDROCHLOROTHIAZIDE [Concomitant]
     Dosage: UNK
  3. LIPITOR [Concomitant]
     Dosage: UNK
  4. TIMOPTIC [Concomitant]
     Dosage: 1 DROP IN EACH EYE, BID
     Route: 046

REACTIONS (1)
  - Superficial injury of eye [Recovered/Resolved]
